FAERS Safety Report 11920489 (Version 1)
Quarter: 2016Q1

REPORT INFORMATION
  Report Type: Spontaneous
  Country: US (occurrence: US)
  Receive Date: 20160115
  Receipt Date: 20160115
  Transmission Date: 20160526
  Serious: No
  Sender: FDA-Public Use
  Company Number: US-GLAXOSMITHKLINE-US2016GSK004406

PATIENT
  Age: 72 Year
  Sex: Female

DRUGS (1)
  1. REQUIP [Suspect]
     Active Substance: ROPINIROLE HYDROCHLORIDE
     Indication: PRODUCT USED FOR UNKNOWN INDICATION
     Dosage: 1 MG, UNK
     Dates: start: 20120911

REACTIONS (4)
  - Fall [Unknown]
  - Orthosis user [Unknown]
  - Impaired work ability [Unknown]
  - Back injury [Unknown]

NARRATIVE: CASE EVENT DATE: 201510
